FAERS Safety Report 5596651-1 (Version None)
Quarter: 2007Q4

REPORT INFORMATION
  Report Type: 
  Country: None (occurrence: None)
  Receive Date: 20071219
  Receipt Date: 20071114
  Transmission Date: 20080405
  Serious: Yes (Hospitalization)
  Sender: FDA-Public Use
  Company Number: US-WYE-H01262807

PATIENT
  Age: 62 Year
  Sex: Male
  Weight: 69.92 kg

DRUGS (8)
  1. TORISEL [Suspect]
     Indication: RENAL CELL CARCINOMA STAGE UNSPECIFIED
     Dosage: 25 MG 1X PER 1 DAY, INTRAVENOUS ; 25 MG 1X PER 1 WK, INTRAVENOUS
     Route: 042
     Dates: start: 20071113, end: 20071113
  2. TORISEL [Suspect]
     Indication: RENAL CELL CARCINOMA STAGE UNSPECIFIED
     Dosage: 25 MG 1X PER 1 DAY, INTRAVENOUS ; 25 MG 1X PER 1 WK, INTRAVENOUS
     Route: 042
     Dates: start: 20070101
  3. PROCRIT (ERYTHROPOIETAN) [Concomitant]
  4. ZOMETA [Concomitant]
  5. PROTONIX [Concomitant]
  6. POTASSIUM CHLORIDE [Concomitant]
  7. DILAUDID [Concomitant]
  8. BENADRYL [Concomitant]

REACTIONS (2)
  - BLOOD CREATININE INCREASED [None]
  - GLOMERULAR FILTRATION RATE DECREASED [None]
